FAERS Safety Report 5887724-4 (Version None)
Quarter: 2008Q3

REPORT INFORMATION
  Report Type: 
  Country: None (occurrence: None)
  Receive Date: 20080918
  Receipt Date: 20080912
  Transmission Date: 20090109
  Serious: Yes (Other)
  Sender: FDA-Public Use
  Company Number: US-AVENTIS-200816009US

PATIENT
  Sex: Male

DRUGS (10)
  1. LASIX [Suspect]
     Indication: MYELODYSPLASTIC SYNDROME
     Dosage: DOSE: UNK
  2. HYDROCHLOROTHIAZIDE [Suspect]
     Indication: MYELODYSPLASTIC SYNDROME
     Dosage: DOSE: UNK
  3. REVLIMID [Suspect]
     Indication: MYELODYSPLASTIC SYNDROME
     Route: 048
     Dates: start: 20080530
  4. REVLIMID [Suspect]
     Route: 048
     Dates: start: 20080225, end: 20080430
  5. REVLIMID [Suspect]
     Route: 048
     Dates: start: 20060530, end: 20060801
  6. PROCRIT [Concomitant]
     Dates: start: 20050621, end: 20060328
  7. WARFARIN SODIUM [Concomitant]
     Dates: end: 20050504
  8. HYDREA [Concomitant]
     Dates: start: 20060517, end: 20080628
  9. TRINSICON                          /00097501/ [Concomitant]
     Dosage: DOSE: UNK
     Dates: start: 20050719, end: 20060217
  10. LEVOTHROID [Concomitant]
     Dates: start: 20080314

REACTIONS (5)
  - BLOOD CREATININE INCREASED [None]
  - BLOOD UREA INCREASED [None]
  - FATIGUE [None]
  - NEPHROLITHIASIS [None]
  - RENAL IMPAIRMENT [None]
